FAERS Safety Report 9398621 (Version 2)
Quarter: 2013Q3

REPORT INFORMATION
  Report Type: Spontaneous
  Country: IT (occurrence: IT)
  Receive Date: 20130712
  Receipt Date: 20130806
  Transmission Date: 20140515
  Serious: Yes (Hospitalization)
  Sender: FDA-Public Use
  Company Number: PHHY2013IT073629

PATIENT
  Sex: Female

DRUGS (7)
  1. CLOMIPRAMINE [Suspect]
     Route: 048
  2. IMIPRAMINE [Suspect]
     Route: 048
  3. TALOFEN [Suspect]
     Route: 048
  4. ORAP [Suspect]
     Route: 048
  5. DELORAZEPAM [Concomitant]
  6. SERTRALINE [Concomitant]
  7. BACLOFEN [Concomitant]

REACTIONS (3)
  - Toxicity to various agents [Not Recovered/Not Resolved]
  - Drug abuse [Not Recovered/Not Resolved]
  - Sopor [Not Recovered/Not Resolved]
